FAERS Safety Report 17693275 (Version 1)
Quarter: 2020Q2

REPORT INFORMATION
  Report Type: Spontaneous
  Country: US (occurrence: US)
  Receive Date: 20200422
  Receipt Date: 20200422
  Transmission Date: 20200714
  Serious: Yes (Hospitalization)
  Sender: FDA-Public Use
  Company Number: None

PATIENT
  Age: 70 Year
  Sex: Female

DRUGS (2)
  1. UNKNOWN [Concomitant]
     Active Substance: UNSPECIFIED INGREDIENT
  2. AIMOVIG [Suspect]
     Active Substance: ERENUMAB-AOOE
     Dosage: ?          OTHER FREQUENCY:Q 30 DAYS;?
     Route: 058
     Dates: start: 20190228

REACTIONS (1)
  - Cerebrovascular accident [None]
